FAERS Safety Report 6517955-1 (Version None)
Quarter: 2009Q4

REPORT INFORMATION
  Report Type: 
  Country: None (occurrence: None)
  Receive Date: 20091224
  Receipt Date: 20091214
  Transmission Date: 20100525
  Serious: Yes (Hospitalization)
  Sender: FDA-Public Use
  Company Number: GB-ELI_LILLY_AND_COMPANY-GB200912003333

PATIENT
  Age: 67 Year
  Sex: Female

DRUGS (11)
  1. DULOXETINE HYDROCHLORIDE [Suspect]
     Indication: BIPOLAR I DISORDER
     Dosage: 60 MG, DAILY (1/D)
     Route: 048
  2. ADCAL D3 [Concomitant]
     Dosage: 1 D/F, DAILY (1/D)
     Route: 048
  3. ASPIRIN [Concomitant]
     Dosage: 75 MG, UNKNOWN
     Route: 048
  4. ATORVASTATIN [Concomitant]
     Indication: BLOOD CHOLESTEROL INCREASED
     Dosage: 20 MG, UNKNOWN
     Route: 048
     Dates: start: 20090901, end: 20091123
  5. BISOPROLOL FUMARATE [Concomitant]
     Dosage: 7.5 MG, DAILY (1/D)
     Route: 048
  6. NITROGLYCERIN [Concomitant]
     Dosage: UNK, AS NEEDED
     Route: 060
  7. HYDROXOCOBALAMIN [Concomitant]
     Dosage: 1 MG, MONTHLY (1/M)
     Route: 030
  8. MEBEVERINE [Concomitant]
     Dosage: 135 MG, 3/D
     Route: 048
  9. MOVICOL /01749801/ [Concomitant]
     Dosage: 1 D/F, 2/D
     Route: 048
  10. NICORANDIL [Concomitant]
     Dosage: 20 MG, 2/D
     Route: 048
  11. ZOLPIDEM [Concomitant]
     Dosage: 10 MG, AS NEEDED
     Route: 048

REACTIONS (11)
  - BLOOD CREATINE PHOSPHOKINASE INCREASED [None]
  - CONFUSIONAL STATE [None]
  - DYSKINESIA [None]
  - HALLUCINATION [None]
  - MUSCLE SPASMS [None]
  - MYALGIA [None]
  - OFF LABEL USE [None]
  - RESTLESS LEGS SYNDROME [None]
  - RESTLESSNESS [None]
  - TARDIVE DYSKINESIA [None]
  - TRISMUS [None]
